FAERS Safety Report 9453927 (Version 1)
Quarter: 2013Q3

REPORT INFORMATION
  Report Type: Not Available
  Country: US (occurrence: US)
  Receive Date: 20110919
  Receipt Date: 20130812
  Transmission Date: 20140515
  Serious: Yes (Other)
  Sender: FDA-Public Use
  Company Number: US-LUNDBECK-DKLU1072588

PATIENT
  Age: 44 Year
  Sex: Male

DRUGS (25)
  1. SABRIL [Suspect]
     Indication: COMPLEX PARTIAL SEIZURES
     Route: 048
     Dates: start: 20110811
  2. SABRIL [Suspect]
     Indication: EPILEPSY
     Route: 048
     Dates: start: 20110811
  3. SABRIL [Suspect]
     Indication: EPILEPSY
     Route: 048
  4. SABRIL [Suspect]
     Route: 048
  5. SABRIL [Suspect]
     Route: 048
     Dates: start: 20120204
  6. FELBATOL [Concomitant]
     Indication: EPILEPSY
     Route: 048
     Dates: start: 1992
  7. FELBATOL [Concomitant]
     Indication: COMPLEX PARTIAL SEIZURES
  8. FELBATOL [Concomitant]
     Indication: EPILEPSY
  9. KLONOPIN [Concomitant]
     Indication: EPILEPSY
     Route: 048
     Dates: start: 201108
  10. KLONOPIN [Concomitant]
     Indication: COMPLEX PARTIAL SEIZURES
     Route: 048
     Dates: start: 201108
  11. KLONOPIN [Concomitant]
     Indication: EPILEPSY
  12. BANZEL [Concomitant]
     Indication: EPILEPSY
     Route: 048
  13. BANZEL [Concomitant]
     Indication: COMPLEX PARTIAL SEIZURES
     Route: 048
  14. BANZEL [Concomitant]
     Indication: EPILEPSY
  15. VIMPAT [Concomitant]
     Indication: EPILEPSY
     Route: 048
  16. VIMPAT [Concomitant]
     Indication: COMPLEX PARTIAL SEIZURES
  17. VIMPAT [Concomitant]
     Indication: EPILEPSY
  18. TRILEPTAL [Concomitant]
     Indication: EPILEPSY
     Route: 048
  19. TRILEPTAL [Concomitant]
     Indication: COMPLEX PARTIAL SEIZURES
     Route: 048
  20. TRILEPTAL [Concomitant]
     Indication: EPILEPSY
  21. ROZEREM [Concomitant]
     Indication: INSOMNIA
     Route: 048
  22. MELATONIN [Concomitant]
     Indication: INSOMNIA
     Route: 048
  23. LAMICTAL [Concomitant]
     Indication: EPILEPSY
  24. LAMICTAL [Concomitant]
     Indication: COMPLEX PARTIAL SEIZURES
  25. LAMICTAL [Concomitant]
     Indication: EPILEPSY

REACTIONS (4)
  - Convulsion [Not Recovered/Not Resolved]
  - Rash pruritic [Not Recovered/Not Resolved]
  - Fatigue [Not Recovered/Not Resolved]
  - Hypersomnia [Not Recovered/Not Resolved]
